FAERS Safety Report 7316338-4 (Version None)
Quarter: 2011Q1

REPORT INFORMATION
  Report Type: 
  Country: None (occurrence: None)
  Receive Date: 20110225
  Receipt Date: 20110223
  Transmission Date: 20110831
  Serious: Yes (Hospitalization)
  Sender: FDA-Public Use
  Company Number: DE-ABBOTT-11P-062-0702984-00

PATIENT
  Sex: Female

DRUGS (7)
  1. MOVIPREP [Concomitant]
     Indication: PRODUCT USED FOR UNKNOWN INDICATION
     Dates: start: 20101003
  2. ZEMPLAR [Suspect]
     Indication: HYPERPARATHYROIDISM SECONDARY
     Route: 048
  3. FALITHROM [Suspect]
     Indication: ATRIAL FIBRILLATION
     Route: 048
  4. PANTOPRAZOL [Concomitant]
     Indication: PRODUCT USED FOR UNKNOWN INDICATION
     Dates: start: 20101003
  5. CLEXANE [Concomitant]
     Indication: PRODUCT USED FOR UNKNOWN INDICATION
     Dates: start: 20101003
  6. TAVOR [Concomitant]
     Indication: PRODUCT USED FOR UNKNOWN INDICATION
     Dates: start: 20101003
  7. LACTULOSE [Concomitant]
     Indication: PRODUCT USED FOR UNKNOWN INDICATION
     Dates: start: 20100803, end: 20101002

REACTIONS (6)
  - OVERDOSE [None]
  - PULMONARY HYPERTENSION [None]
  - HAEMOPTYSIS [None]
  - PULMONARY CONGESTION [None]
  - HAEMORRHAGIC ANAEMIA [None]
  - GASTRITIS HAEMORRHAGIC [None]
